FAERS Safety Report 6088698-6 (Version None)
Quarter: 2009Q1

REPORT INFORMATION
  Report Type: 
  Country: None (occurrence: None)
  Receive Date: 20090224
  Receipt Date: 20090216
  Transmission Date: 20090719
  Serious: Yes (Hospitalization)
  Sender: FDA-Public Use
  Company Number: IT-AVENTIS-200818465GDDC

PATIENT
  Age: 61 Year
  Sex: Male

DRUGS (4)
  1. ARAVA [Suspect]
     Indication: RHEUMATOID ARTHRITIS
     Route: 048
     Dates: start: 20080301, end: 20080730
  2. MEDROL [Concomitant]
     Route: 048
  3. ALPRAZOLAM [Concomitant]
     Dosage: DOSE: UNK
  4. LOPERAMIDE HCL [Concomitant]
     Dosage: DOSE: UNK

REACTIONS (3)
  - DIARRHOEA [None]
  - DIPLOPIA [None]
  - NEURITIS [None]
